FAERS Safety Report 7352384-2 (Version None)
Quarter: 2011Q1

REPORT INFORMATION
  Report Type: 
  Country: None (occurrence: None)
  Receive Date: 20110315
  Receipt Date: 20110310
  Transmission Date: 20110831
  Serious: Yes (Death)
  Sender: FDA-Public Use
  Company Number: GB-ASTRAZENECA-2011SE13714

PATIENT
  Age: 27172 Day
  Sex: Female

DRUGS (2)
  1. FASLODEX [Suspect]
     Route: 030
  2. OTHER MEDICATIONS [Concomitant]

REACTIONS (1)
  - DEATH [None]
